FAERS Safety Report 8578530 (Version 3)
Quarter: 2012Q4

REPORT INFORMATION
  Report Type: 
  Country: US (occurrence: US)
  Receive Date: 20120524
  Receipt Date: 20120912
  Transmission Date: 20130627
  Serious: Yes (Hospitalization)
  Sender: FDA-Public Use
  Company Number: US-BAYER-2012-050791

PATIENT
  Age: 50 Year
  Sex: Female
  Weight: 70.3 kg

DRUGS (8)
  1. BETASERON [Suspect]
     Indication: MULTIPLE SCLEROSIS
     Dosage: 0.3 mg, QOD
     Route: 058
     Dates: start: 2001
  2. OMEPRAZOLE [Concomitant]
     Indication: GASTROOESOPHAGEAL REFLUX DISEASE
     Dosage: 1 DF, BID (1 cap 20-30 min before breakfast and dinner)
     Route: 048
  3. OMEPRAZOLE [Concomitant]
     Indication: GASTROOESOPHAGEAL REFLUX DISEASE
     Dosage: 20 mg, QD
  4. RANITIDINE [Concomitant]
     Indication: GASTROOESOPHAGEAL REFLUX DISEASE
     Dosage: 2 DF, UNK (150 mg tabs)
     Route: 048
  5. PROBIOTICS [Concomitant]
     Indication: PROBIOTIC THERAPY
     Dosage: 1 DF, QD
     Route: 048
  6. VITAMIN D [Concomitant]
     Dosage: 2000 units, QD
  7. METAMUCIL [Concomitant]
     Indication: GASTROOESOPHAGEAL REFLUX DISEASE
     Dosage: UNK UNK, QD
  8. TYLENOL [PARACETAMOL] [Concomitant]
     Dosage: 2 DF, PRN (325 mg tabs)
     Route: 048

REACTIONS (5)
  - Appendicitis [Recovered/Resolved]
  - Abdominal pain upper [Recovered/Resolved]
  - Incision site infection [Recovered/Resolved]
  - Incision site pain [Recovered/Resolved]
  - Malaise [Recovering/Resolving]
